FAERS Safety Report 5014589-5 (Version None)
Quarter: 2006Q2

REPORT INFORMATION
  Report Type: 
  Country: None (occurrence: None)
  Receive Date: 20060525
  Receipt Date: 20060509
  Transmission Date: 20061013
  Serious: Yes (Other)
  Sender: FDA-Public Use
  Company Number: US200605001792

PATIENT
  Age: 55 Year
  Sex: Female

DRUGS (1)
  1. GEMZAR [Suspect]
     Indication: PANCREATIC CARCINOMA
     Dosage: INTRAVENOUS
     Route: 042
     Dates: start: 20051201

REACTIONS (1)
  - THROMBOSIS [None]
